FAERS Safety Report 4785420-8 (Version None)
Quarter: 2005Q3

REPORT INFORMATION
  Report Type: 
  Country: None (occurrence: None)
  Receive Date: 20050929
  Receipt Date: 20050914
  Transmission Date: 20060218
  Serious: Yes (Life-Threatening, Hospitalization)
  Sender: FDA-Public Use
  Company Number: 217754

PATIENT
  Age: 36 Year
  Sex: Female
  Weight: 77.9 kg

DRUGS (14)
  1. RITUXIMAB (RITUXIMAB) CONC FOR SOLUTION FOR INFUSION, 100MG [Suspect]
     Indication: B-CELL LYMPHOMA
     Dosage: Q3W, INTRAVENOUS
     Route: 042
     Dates: start: 20050901, end: 20050905
  2. CYTOXAN [Suspect]
     Indication: B-CELL LYMPHOMA
     Dosage: Q3W, INTRAVENOUS
     Route: 042
     Dates: start: 20050901, end: 20050905
  3. VINCRISTINE [Suspect]
     Indication: B-CELL LYMPHOMA
     Dosage: 2 MG, Q3W, INTRAVNEOUS
     Route: 042
     Dates: start: 20050901, end: 20050905
  4. DOXORUBICIN HCL [Suspect]
     Indication: B-CELL LYMPHOMA
     Dosage: Q3W, INTRAVENOUS
     Route: 042
     Dates: start: 20050901, end: 20050905
  5. NEUPOGEN [Concomitant]
  6. CIPRO [Concomitant]
  7. DIFLUCAN [Concomitant]
  8. VALTREX [Concomitant]
  9. PROTONIX [Concomitant]
  10. DARVON [Concomitant]
  11. AMBIEN [Concomitant]
  12. ATIVAN [Concomitant]
  13. ZOFRAN (ONDANETRON HYDROCHLORIDE) [Concomitant]
  14. DECADRON [Concomitant]

REACTIONS (7)
  - ANAPHYLACTIC REACTION [None]
  - FEBRILE NEUTROPENIA [None]
  - HAEMATOCRIT DECREASED [None]
  - HAEMOGLOBIN DECREASED [None]
  - LYMPHADENOPATHY [None]
  - PLATELET COUNT DECREASED [None]
  - PULMONARY HILUM MASS [None]
